FAERS Safety Report 14144037 (Version 1)
Quarter: 2017Q4

REPORT INFORMATION
  Report Type: Spontaneous
  Country: US (occurrence: US)
  Receive Date: 20171031
  Receipt Date: 20171031
  Transmission Date: 20180321
  Serious: Yes (Other)
  Sender: FDA-Public Use
  Company Number: US-WEST-WARD PHARMACEUTICALS CORP.-US-H14001-17-04103

PATIENT
  Sex: Male
  Weight: 104.42 kg

DRUGS (1)
  1. FLUTICASONE PROPIONATE. [Suspect]
     Active Substance: FLUTICASONE PROPIONATE
     Indication: HYPERSENSITIVITY
     Dosage: 1 OR 2 SPRAYS AT NIGHT
     Route: 045
     Dates: start: 2017

REACTIONS (4)
  - Viral infection [Unknown]
  - Condition aggravated [Unknown]
  - Loss of consciousness [Recovered/Resolved]
  - Implantable defibrillator insertion [Unknown]

NARRATIVE: CASE EVENT DATE: 2017
